FAERS Safety Report 10415032 (Version 5)
Quarter: 2015Q2

REPORT INFORMATION
  Report Type: Spontaneous
  Country: JP (occurrence: JP)
  Receive Date: 20140828
  Receipt Date: 20150409
  Transmission Date: 20150821
  Serious: Yes (Other)
  Sender: FDA-Public Use
  Company Number: JP-AMGEN-JPNSP2014065299

PATIENT
  Age: 63 Year
  Sex: Male

DRUGS (5)
  1. DENOTAS [Concomitant]
     Active Substance: CALCIUM CARBONATE\CHOLECALCIFEROL\MAGNESIUM CARBONATE
     Dosage: 2 DF, QD
  2. AVASTIN [Concomitant]
     Active Substance: BEVACIZUMAB
     Dosage: 420 MG, QD
     Route: 042
     Dates: start: 20131113
  3. DECADRON [Concomitant]
     Active Substance: DEXAMETHASONE
     Dosage: 8.25 MG, QD
     Route: 042
     Dates: start: 20131113, end: 20140702
  4. 5-FU                               /00098801/ [Concomitant]
     Active Substance: FLUOROURACIL
     Dosage: 660 MG, QD
     Route: 042
     Dates: start: 20140409
  5. RANMARK [Suspect]
     Active Substance: DENOSUMAB
     Indication: METASTASES TO BONE
     Dosage: 120 MG, Q4WK
     Route: 058
     Dates: start: 20131010

REACTIONS (1)
  - Osteonecrosis of jaw [Not Recovered/Not Resolved]

NARRATIVE: CASE EVENT DATE: 20140822
